FAERS Safety Report 17001507 (Version 2)
Quarter: 2019Q4

REPORT INFORMATION
  Report Type: Spontaneous
  Country: TR (occurrence: TR)
  Receive Date: 20191106
  Receipt Date: 20191202
  Transmission Date: 20200122
  Serious: Yes (Life-Threatening)
  Sender: FDA-Public Use
  Company Number: TR-PFIZER INC-2019477003

PATIENT
  Age: 44 Year
  Sex: Male
  Weight: 86 kg

DRUGS (3)
  1. COLCIOSPA [Suspect]
     Active Substance: THIOCOLCHICOSIDE
     Indication: MYALGIA
     Dosage: 4 MG, 1X/DAY
     Route: 030
     Dates: start: 20191016, end: 20191016
  2. RODINAC [DICLOFENAC SODIUM] [Suspect]
     Active Substance: DICLOFENAC SODIUM
     Indication: MYALGIA
     Dosage: 75 MG, 1X/DAY
     Route: 030
     Dates: start: 20191016, end: 20191016
  3. ATIVAN [Suspect]
     Active Substance: LORAZEPAM
     Indication: ANXIETY
     Dosage: 1 MG, 1X/DAY
     Route: 060
     Dates: start: 20191016, end: 20191016

REACTIONS (1)
  - Dyspnoea [Recovered/Resolved]

NARRATIVE: CASE EVENT DATE: 20191016
